FAERS Safety Report 20436494 (Version 2)
Quarter: 2023Q1

REPORT INFORMATION
  Report Type: Other
  Country: US (occurrence: None)
  Receive Date: 20220207
  Receipt Date: 20230124
  Transmission Date: 20230417
  Serious: Yes (Death)
  Sender: FDA-Public Use
  Company Number: US-ROCHE-3006973

PATIENT
  Age: 43 Year
  Sex: Male

DRUGS (2)
  1. OCREVUS [Suspect]
     Active Substance: OCRELIZUMAB
     Indication: Relapsing multiple sclerosis
     Dosage: 300MG EVERY 14 DAYS, LATER 600MG EVERY 6 MONTHS, DATE OF TREATMENT: 30/JUL/2020, 13/AUG/2020 (600MG)
     Route: 065
     Dates: start: 20200730, end: 20211005
  2. OCREVUS [Suspect]
     Active Substance: OCRELIZUMAB
     Indication: Relapsing-remitting multiple sclerosis

REACTIONS (1)
  - Death [Fatal]

NARRATIVE: CASE EVENT DATE: 20211127
